FAERS Safety Report 7110559-1 (Version None)
Quarter: 2010Q4

REPORT INFORMATION
  Report Type: 
  Country: None (occurrence: None)
  Receive Date: 20101118
  Receipt Date: 20101112
  Transmission Date: 20110411
  Serious: Yes (Hospitalization, Other)
  Sender: FDA-Public Use
  Company Number: US-ROCHE-595731

PATIENT
  Sex: Male
  Weight: 83.9 kg

DRUGS (1)
  1. ACCUTANE [Suspect]
     Indication: ACNE
     Route: 065
     Dates: start: 20020911, end: 20030205

REACTIONS (11)
  - ANXIETY [None]
  - ARTHRALGIA [None]
  - CROHN'S DISEASE [None]
  - DEPRESSION [None]
  - DYSPNOEA [None]
  - ILEAL STENOSIS [None]
  - INFLAMMATORY BOWEL DISEASE [None]
  - INSOMNIA [None]
  - NIGHT BLINDNESS [None]
  - SMALL INTESTINAL OBSTRUCTION [None]
  - SUICIDAL IDEATION [None]
